FAERS Safety Report 12836954 (Version 1)
Quarter: 2016Q4

REPORT INFORMATION
  Report Type: Spontaneous
  Country: BR (occurrence: BR)
  Receive Date: 20161011
  Receipt Date: 20161011
  Transmission Date: 20170207
  Serious: Yes (Other)
  Sender: FDA-Public Use
  Company Number: BR-PFIZER INC-2016471315

PATIENT
  Age: 69 Year
  Sex: Female
  Weight: 80 kg

DRUGS (2)
  1. FRONTAL [Suspect]
     Active Substance: ALPRAZOLAM
     Indication: HYPERTENSION
     Dosage: 2 MG, 1/4 TABLET TWICE PER DAY AND 1 TABLET AT NIGHT
     Route: 048
     Dates: start: 1996
  2. SULPAN [Concomitant]
     Active Substance: BROMAZEPAM\SULPIRIDE
     Dosage: 2 TABLETS AT NIGHT
     Route: 048
     Dates: start: 201602

REACTIONS (4)
  - Tachycardia [Unknown]
  - Blood pressure increased [Unknown]
  - Tremor [Unknown]
  - Lung neoplasm malignant [Not Recovered/Not Resolved]
